FAERS Safety Report 6087790-X (Version None)
Quarter: 2009Q1

REPORT INFORMATION
  Report Type: 
  Country: None (occurrence: None)
  Receive Date: 20090219
  Receipt Date: 20090102
  Transmission Date: 20090719
  Serious: No
  Sender: FDA-Public Use
  Company Number: WAES 0901USA00058

PATIENT
  Age: 62 Year
  Sex: Male

DRUGS (1)
  1. JANUVIA [Suspect]
     Indication: DIABETES MELLITUS
     Dosage: 100 MG/DAILY/PO
     Route: 048
     Dates: start: 20081109

REACTIONS (5)
  - COUGH [None]
  - HEAD INJURY [None]
  - LOSS OF CONSCIOUSNESS [None]
  - RHINORRHOEA [None]
  - SWOLLEN TONGUE [None]
